FAERS Safety Report 7678853-3 (Version None)
Quarter: 2011Q3

REPORT INFORMATION
  Report Type: 
  Country: None (occurrence: None)
  Receive Date: 20110812
  Receipt Date: 20110808
  Transmission Date: 20111222
  Serious: Yes (Other)
  Sender: FDA-Public Use
  Company Number: PHHY2010FR35940

PATIENT
  Age: 30 Year
  Sex: Female
  Weight: 54 kg

DRUGS (4)
  1. METOPIRONE [Suspect]
     Dosage: 3 G, ONCE/SINGLE
     Route: 048
     Dates: start: 20100504
  2. CORTICOSTEROIDS [Concomitant]
     Dosage: UNK UKN, UNK
  3. DEXAMETHASONE ACETATE [Concomitant]
     Dosage: UNK UKN, UNK
  4. NSAID'S [Concomitant]
     Dosage: UNK UKN, UNK

REACTIONS (1)
  - MATERNAL EXPOSURE DURING PREGNANCY [None]
